FAERS Safety Report 9055758 (Version 1)
Quarter: 2013Q1

REPORT INFORMATION
  Report Type: Spontaneous
  Country: NO (occurrence: NO)
  Receive Date: 20130206
  Receipt Date: 20130206
  Transmission Date: 20140127
  Serious: Yes (Other)
  Sender: FDA-Public Use
  Company Number: NO-BAYER-2013-011798

PATIENT
  Sex: Male

DRUGS (3)
  1. INTERFERON BETA - 1B [Suspect]
  2. PROTEASE INHIBITORS [Suspect]
  3. RIBAVIRIN [Suspect]

REACTIONS (1)
  - Stevens-Johnson syndrome [Not Recovered/Not Resolved]
